FAERS Safety Report 15880831 (Version 3)
Quarter: 2019Q1

REPORT INFORMATION
  Report Type: Spontaneous
  Country: US (occurrence: US)
  Receive Date: 20190128
  Receipt Date: 20190308
  Transmission Date: 20190417
  Serious: Yes (Hospitalization, Other)
  Sender: FDA-Public Use
  Company Number: PHEH2018US042280

PATIENT
  Sex: Female

DRUGS (1)
  1. NEOMYCIN+POLY B SULFATE+ HYDROCORT [Suspect]
     Active Substance: HYDROCORTISONE\NEOMYCIN SULFATE\POLYMYXIN B SULFATE
     Indication: PRODUCT USED FOR UNKNOWN INDICATION
     Dosage: UNK
     Route: 047

REACTIONS (8)
  - Blindness transient [Recovered/Resolved]
  - Furuncle [Unknown]
  - Breast disorder [Unknown]
  - Somnolence [Unknown]
  - Headache [Unknown]
  - Asthenia [Unknown]
  - Mental impairment [Unknown]
  - Depression [Unknown]
